FAERS Safety Report 16768132 (Version 1)
Quarter: 2019Q4

REPORT INFORMATION
  Report Type: Spontaneous
  Country: US (occurrence: US)
  Receive Date: 20190903
  Receipt Date: 20190903
  Transmission Date: 20200122
  Serious: No
  Sender: FDA-Public Use
  Company Number: None

PATIENT
  Age: 24 Year
  Sex: Male
  Weight: 103.5 kg

DRUGS (4)
  1. GAMUNEX [Suspect]
     Active Substance: HUMAN IMMUNOGLOBULIN G
     Indication: CHRONIC INFLAMMATORY DEMYELINATING POLYRADICULONEUROPATHY
     Dosage: ?          OTHER FREQUENCY:DAILY FOR 4 DAYS;?
     Route: 041
     Dates: start: 20190815, end: 20190830
  2. BENADRYL 25MG [Concomitant]
     Dates: start: 20190815, end: 20190830
  3. TYLENOL 650MG [Concomitant]
     Dates: start: 20190815, end: 20190830
  4. SODIUM CHLORIDE 0.9% [Concomitant]
     Active Substance: SODIUM CHLORIDE
     Dates: start: 20190815, end: 20190830

REACTIONS (1)
  - Dermatitis acneiform [None]

NARRATIVE: CASE EVENT DATE: 20190830
